FAERS Safety Report 6395044-7 (Version None)
Quarter: 2009Q4

REPORT INFORMATION
  Report Type: 
  Country: None (occurrence: None)
  Receive Date: 20091009
  Receipt Date: 20091005
  Transmission Date: 20100525
  Serious: Yes (Disabling, Other)
  Sender: FDA-Public Use
  Company Number: US-PFIZER INC-2009278862

PATIENT
  Weight: 95.238 kg

DRUGS (5)
  1. PROVERA [Suspect]
     Indication: HORMONE REPLACEMENT THERAPY
     Dosage: UNK
     Route: 048
     Dates: start: 19850101, end: 20020101
  2. PREMARIN [Suspect]
     Indication: HORMONE REPLACEMENT THERAPY
     Dosage: UNK
     Dates: start: 19850101, end: 20020101
  3. ASPIRIN [Concomitant]
     Dosage: UNK
     Dates: start: 19880101
  4. NITROGLYCERIN [Concomitant]
     Dosage: UNK
     Dates: start: 19880101
  5. CARDIZEM [Concomitant]
     Indication: BLOOD PRESSURE
     Dosage: UNK
     Dates: start: 19880101

REACTIONS (1)
  - BREAST CANCER FEMALE [None]
